FAERS Safety Report 5650014-9 (Version None)
Quarter: 2008Q1

REPORT INFORMATION
  Report Type: 
  Country: None (occurrence: None)
  Receive Date: 20080131
  Receipt Date: 20071129
  Transmission Date: 20080703
  Serious: No
  Sender: FDA-Public Use
  Company Number: US200711006929

PATIENT
  Age: 60 Year
  Sex: Male
  Weight: 111.6 kg

DRUGS (4)
  1. BYETTA [Suspect]
     Indication: TYPE 2 DIABETES MELLITUS
     Dosage: 5 UG, 2/D, SUBCUTANEOUS
     Route: 058
     Dates: start: 20071129
  2. GLYBURIDE [Concomitant]
  3. ACARBOSE [Concomitant]
  4. ZOCOR [Concomitant]

REACTIONS (1)
  - TREMOR [None]
